FAERS Safety Report 6409422-0 (Version None)
Quarter: 2009Q4

REPORT INFORMATION
  Report Type: 
  Country: None (occurrence: None)
  Receive Date: 20091019
  Receipt Date: 20091019
  Transmission Date: 20100525
  Serious: Yes (Hospitalization)
  Sender: FDA-Public Use
  Company Number: None

PATIENT
  Sex: Male
  Weight: 67.3592 kg

DRUGS (7)
  1. PEMETREXED [Suspect]
     Indication: NON-SMALL CELL LUNG CANCER
     Dosage: 652MG EVERY 21 DAYS IV
     Route: 042
     Dates: start: 20090715, end: 20091008
  2. AVASTIN [Suspect]
     Indication: NON-SMALL CELL LUNG CANCER
     Dosage: 1,009MG EVERY 21 DAYS IV DRIP
     Route: 041
     Dates: start: 20090715, end: 20091008
  3. GABAPENTIN [Concomitant]
  4. FAMOTIDINE [Concomitant]
  5. FOLIC ACID [Concomitant]
  6. HYDROMORPHONE [Concomitant]
  7. DEXAMETHASONE [Concomitant]

REACTIONS (2)
  - CHEST PAIN [None]
  - DYSPNOEA [None]
